FAERS Safety Report 5415381-X (Version None)
Quarter: 2007Q3

REPORT INFORMATION
  Report Type: 
  Country: None (occurrence: None)
  Receive Date: 20070813
  Receipt Date: 20070808
  Transmission Date: 20080115
  Serious: Yes (Life-Threatening)
  Sender: FDA-Public Use
  Company Number: 2007SP006756

PATIENT
  Age: 60 Year
  Sex: Male
  Weight: 67 kg

DRUGS (8)
  1. TEMODAL [Suspect]
     Indication: GLIOBLASTOMA MULTIFORME
     Dosage: 150 MG/M2; QD;PO; 100 MG/M2;QD;PO; 150 MG/M2;QD;PO; 150 MG/M2;QD;PO
     Route: 048
     Dates: start: 20060920, end: 20060922
  2. TEMODAL [Suspect]
     Indication: GLIOBLASTOMA MULTIFORME
     Dosage: 150 MG/M2; QD;PO; 100 MG/M2;QD;PO; 150 MG/M2;QD;PO; 150 MG/M2;QD;PO
     Route: 048
     Dates: start: 20061105, end: 20061109
  3. TEMODAL [Suspect]
     Indication: GLIOBLASTOMA MULTIFORME
     Dosage: 150 MG/M2; QD;PO; 100 MG/M2;QD;PO; 150 MG/M2;QD;PO; 150 MG/M2;QD;PO
     Route: 048
     Dates: start: 20061222, end: 20061226
  4. TEMODAL [Suspect]
     Indication: GLIOBLASTOMA MULTIFORME
     Dosage: 150 MG/M2; QD;PO; 100 MG/M2;QD;PO; 150 MG/M2;QD;PO; 150 MG/M2;QD;PO
     Route: 048
     Dates: start: 20070119, end: 20070123
  5. EXCEGRAN [Concomitant]
  6. SELENICA-R [Concomitant]
  7. FAMOTIDINE [Concomitant]
  8. MYSTAN [Concomitant]

REACTIONS (5)
  - DISSEMINATED INTRAVASCULAR COAGULATION [None]
  - PLATELET COUNT DECREASED [None]
  - PNEUMONIA ASPIRATION [None]
  - SEPSIS [None]
  - VOMITING [None]
